FAERS Safety Report 11091163 (Version 3)
Quarter: 2015Q3

REPORT INFORMATION
  Report Type: Spontaneous
  Country: US (occurrence: US)
  Receive Date: 20150505
  Receipt Date: 20150729
  Transmission Date: 20151125
  Serious: No
  Sender: FDA-Public Use
  Company Number: US-PFIZER INC-2015152230

PATIENT
  Age: 57 Year
  Sex: Male
  Weight: 61 kg

DRUGS (9)
  1. VIAGRA [Concomitant]
     Active Substance: SILDENAFIL CITRATE
     Dosage: 100 MG, UNK
     Dates: start: 201504
  2. OXYCODONE [Interacting]
     Active Substance: OXYCODONE
     Indication: PAIN
     Dosage: UNK
  3. LYRICA [Interacting]
     Active Substance: PREGABALIN
     Indication: SPINAL FRACTURE
  4. LYRICA [Interacting]
     Active Substance: PREGABALIN
     Indication: NECK SURGERY
  5. LYRICA [Suspect]
     Active Substance: PREGABALIN
     Indication: ARTHRITIS
     Dosage: 50 MG, 3X/DAY
     Dates: start: 201505
  6. LYRICA [Interacting]
     Active Substance: PREGABALIN
     Indication: PAIN
  7. LYRICA [Interacting]
     Active Substance: PREGABALIN
     Indication: BACK PAIN
  8. LYRICA [Interacting]
     Active Substance: PREGABALIN
     Indication: FATIGUE
  9. LYRICA [Interacting]
     Active Substance: PREGABALIN
     Indication: FIBROMYALGIA

REACTIONS (1)
  - Drug interaction [Recovered/Resolved]

NARRATIVE: CASE EVENT DATE: 201505
